FAERS Safety Report 19157530 (Version 1)
Quarter: 2021Q2

REPORT INFORMATION
  Report Type: Spontaneous
  Country: US (occurrence: US)
  Receive Date: 20210420
  Receipt Date: 20210420
  Transmission Date: 20210717
  Serious: No
  Sender: FDA-Public Use
  Company Number: US-SA-2021SA119410

PATIENT
  Age: 38 Year
  Sex: Female

DRUGS (2)
  1. ELIQUIS [Concomitant]
     Active Substance: APIXABAN
  2. ENOXAPARIN SODIUM. [Suspect]
     Active Substance: ENOXAPARIN SODIUM
     Indication: DEEP VEIN THROMBOSIS
     Dosage: DRUG STRUCTURE DOSAGE : 100 MG DRUG INTERVAL DOSAGE : EACH DAY DRUG TREATMENT DURATION: NA
     Dates: start: 20210330

REACTIONS (1)
  - Exposure during pregnancy [Unknown]
